FAERS Safety Report 5938468-1 (Version None)
Quarter: 2008Q4

REPORT INFORMATION
  Report Type: 
  Country: None (occurrence: None)
  Receive Date: 20081103
  Receipt Date: 20080910
  Transmission Date: 20090506
  Serious: Yes (Other)
  Sender: FDA-Public Use
  Company Number: US-BAXTER-2008BH011482

PATIENT

DRUGS (1)
  1. 0.25% ACETIC ACID IRRIGATION SOLUTION [Suspect]
     Indication: OFF LABEL USE
     Route: 055
     Dates: start: 20080801, end: 20080801

REACTIONS (1)
  - DRUG ADMINISTRATION ERROR [None]
